FAERS Safety Report 11689929 (Version 1)
Quarter: 2015Q4

REPORT INFORMATION
  Report Type: Spontaneous
  Country: US (occurrence: US)
  Receive Date: 20151102
  Receipt Date: 20151102
  Transmission Date: 20160304
  Serious: No
  Sender: FDA-Public Use
  Company Number: US-GLAXOSMITHKLINE-US2015150688

PATIENT
  Sex: Female

DRUGS (2)
  1. ALLI [Suspect]
     Active Substance: ORLISTAT
     Indication: WEIGHT LOSS DIET
     Dosage: UNK
     Dates: start: 2011
  2. ALLI [Suspect]
     Active Substance: ORLISTAT
     Dosage: UNK
     Dates: start: 201505

REACTIONS (1)
  - Rectal discharge [Recovered/Resolved]

NARRATIVE: CASE EVENT DATE: 201505
